FAERS Safety Report 6188839-6 (Version None)
Quarter: 2009Q2

REPORT INFORMATION
  Report Type: 
  Country: None (occurrence: None)
  Receive Date: 20090513
  Receipt Date: 20090504
  Transmission Date: 20091009
  Serious: Yes (Hospitalization)
  Sender: FDA-Public Use
  Company Number: ES-TYCO HEALTHCARE/MALLINCKRODT-T200900975

PATIENT

DRUGS (1)
  1. ULTRAJECT [Suspect]
     Indication: COMPUTERISED TOMOGRAM
     Dosage: 125 ML, SINGLE
     Route: 042
     Dates: start: 20090415, end: 20090415

REACTIONS (4)
  - DYSPHAGIA [None]
  - FACE OEDEMA [None]
  - RASH [None]
  - SPEECH DISORDER [None]
